FAERS Safety Report 4914957-3 (Version None)
Quarter: 2006Q1

REPORT INFORMATION
  Report Type: 
  Country: None (occurrence: None)
  Receive Date: 20060217
  Receipt Date: 20060209
  Transmission Date: 20060701
  Serious: Yes (Hospitalization)
  Sender: FDA-Public Use
  Company Number: FR-ABBOTT-06P-056-0324529-00

PATIENT
  Age: 35 Month
  Sex: Male

DRUGS (2)
  1. MICROPAKINE GRANULE [Suspect]
     Indication: DRUG USE FOR UNKNOWN INDICATION
     Route: 048
     Dates: start: 20050901, end: 20060115
  2. MICROPAKINE GRANULE [Suspect]
     Route: 048
     Dates: start: 20060115

REACTIONS (4)
  - DENTAL NECROSIS [None]
  - INFECTION [None]
  - PYREXIA [None]
  - TOOTH EROSION [None]
